FAERS Safety Report 8603094 (Version 20)
Quarter: 2013Q3

REPORT INFORMATION
  Report Type: Report from Study
  Country: IT (occurrence: IT)
  Receive Date: 20120607
  Receipt Date: 20130722
  Transmission Date: 20140515
  Serious: Yes (Hospitalization)
  Sender: FDA-Public Use
  Company Number: IT-ROCHE-1072107

PATIENT
  Age: 77 Year
  Sex: Male
  Weight: 71 kg

DRUGS (99)
  1. PERTUZUMAB [Suspect]
     Indication: GASTRIC CANCER
     Route: 042
     Dates: start: 20120404
  2. PERTUZUMAB [Suspect]
     Dosage: LAST DOSE WAS: 420 MG,LAST DOSE PRIOR TO SAE 02/MAY/2012.
     Route: 042
  3. TRASTUZUMAB [Suspect]
     Indication: GASTRIC CANCER
     Dosage: LAST DOSE TAKEN: 426 MG,LAST DOSE PRIOR TO SAE : 02/MAY/2013
     Route: 042
     Dates: start: 20120404
  4. CAPECITABINE [Suspect]
     Indication: GASTRIC CANCER
     Dosage: LAST DOSE TAKEN: 500MG/M2,LAST DOSE PRIOR TO SAE : 16/MAY/2012
     Route: 048
     Dates: start: 20120404
  5. CISPLATIN [Suspect]
     Indication: GASTRIC CANCER
     Dosage: LAST DOSE TAKEN: 80MG/M2,LAST DOSE PRIOR TO SAE 02/MAY/2012
     Route: 042
     Dates: start: 20120405
  6. LANSOPRAZOLE [Concomitant]
     Indication: PROPHYLAXIS AGAINST GASTROINTESTINAL ULCER
     Route: 048
     Dates: start: 201108
  7. QUINAPRIL [Concomitant]
     Indication: HYPERTENSION
     Route: 048
     Dates: start: 2002, end: 20120524
  8. QUINAPRIL [Concomitant]
     Route: 048
     Dates: start: 20120524, end: 20130121
  9. QUINAPRIL [Concomitant]
     Route: 048
     Dates: start: 20130122
  10. FOLIC ACID [Concomitant]
     Indication: SUPPORTIVE CARE
     Route: 048
     Dates: start: 201107, end: 20120428
  11. FINASTERIDE [Concomitant]
     Indication: BENIGN PROSTATIC HYPERPLASIA
     Route: 048
     Dates: start: 2010
  12. ENOXAPARINA SODICA [Concomitant]
     Indication: THROMBOSIS PROPHYLAXIS
     Route: 058
     Dates: start: 20120406
  13. CIPROFLOXACINA [Concomitant]
     Indication: ANTIBIOTIC PROPHYLAXIS
     Route: 048
     Dates: start: 20120418, end: 20120427
  14. FLUCONAZOLE [Concomitant]
     Indication: ANTIFUNGAL PROPHYLAXIS
     Route: 048
     Dates: start: 20120418, end: 20120427
  15. FLUCONAZOLE [Concomitant]
     Indication: STOMATITIS
     Route: 042
     Dates: start: 20120420, end: 20120427
  16. FLUCONAZOLE [Concomitant]
     Route: 048
     Dates: start: 20120823, end: 20120824
  17. FLUCONAZOLE [Concomitant]
     Route: 048
     Dates: start: 20120928, end: 20121002
  18. OCTREOTIDE [Concomitant]
     Indication: DIARRHOEA
     Route: 058
     Dates: start: 20120418, end: 20120427
  19. PIPERACILLIN SODIUM/TAZOBACTAM [Concomitant]
     Indication: PYREXIA
     Route: 042
     Dates: start: 20120419, end: 20120427
  20. ENTEROGERMINA (ITALY) [Concomitant]
     Indication: SUPPORTIVE CARE
     Route: 048
     Dates: start: 20120420, end: 20120427
  21. FOLINIC ACID [Concomitant]
     Indication: SUPPORTIVE CARE
     Route: 042
     Dates: start: 20120420, end: 20120427
  22. SALINE SOLUTION [Concomitant]
     Indication: HYPOSIDERAEMIA
     Route: 042
     Dates: start: 20120420, end: 20120427
  23. SALINE SOLUTION [Concomitant]
     Indication: HYPONATRAEMIA
     Route: 042
     Dates: start: 20120504, end: 20120504
  24. SALINE SOLUTION [Concomitant]
     Indication: BLOOD CREATININE INCREASED
     Route: 042
     Dates: start: 20120509, end: 20120509
  25. SALINE SOLUTION [Concomitant]
     Route: 042
     Dates: start: 20120522, end: 20120522
  26. SALINE SOLUTION [Concomitant]
     Route: 042
     Dates: start: 20120524, end: 20120524
  27. SALINE SOLUTION [Concomitant]
     Route: 042
     Dates: start: 20120605, end: 20120605
  28. SALINE SOLUTION [Concomitant]
     Route: 042
     Dates: start: 20120606, end: 20120606
  29. SALINE SOLUTION [Concomitant]
     Route: 042
     Dates: start: 20120404, end: 20120831
  30. SALINE SOLUTION [Concomitant]
     Route: 042
     Dates: start: 20120614, end: 20120614
  31. SALINE SOLUTION [Concomitant]
     Route: 042
     Dates: start: 20120621, end: 20120621
  32. SALINE SOLUTION [Concomitant]
     Route: 042
     Dates: start: 20120627, end: 20120627
  33. SALINE SOLUTION [Concomitant]
     Route: 042
     Dates: start: 20120705, end: 20120705
  34. SALINE SOLUTION [Concomitant]
     Route: 042
     Dates: start: 20120718, end: 20120718
  35. SALINE SOLUTION [Concomitant]
     Route: 042
     Dates: start: 20120802, end: 20120802
  36. SALINE SOLUTION [Concomitant]
     Route: 042
     Dates: start: 20120808, end: 20120808
  37. SALINE SOLUTION [Concomitant]
     Route: 042
     Dates: start: 20120822, end: 20120822
  38. SALINE SOLUTION [Concomitant]
     Route: 042
     Dates: start: 20120907, end: 20120907
  39. SALINE SOLUTION [Concomitant]
     Route: 042
     Dates: start: 20120927, end: 20120927
  40. SALINE SOLUTION [Concomitant]
     Route: 042
     Dates: start: 20121019, end: 20121019
  41. SALINE SOLUTION [Concomitant]
     Route: 042
     Dates: start: 20121112, end: 20121112
  42. SALINE SOLUTION [Concomitant]
     Route: 042
     Dates: start: 20130131, end: 20130131
  43. BETAMETHASONE [Concomitant]
     Route: 061
     Dates: start: 20121019, end: 20121021
  44. PARENTERAL NUTRITION [Concomitant]
     Indication: SUPPORTIVE CARE
     Route: 065
     Dates: start: 20120420, end: 20120427
  45. GRANISETRON [Concomitant]
     Route: 042
     Dates: start: 20120502, end: 20120504
  46. GRANISETRON [Concomitant]
     Route: 042
     Dates: start: 20120503, end: 20120503
  47. GRANISETRON [Concomitant]
     Route: 030
     Dates: start: 20120504, end: 20120505
  48. GRANISETRON [Concomitant]
     Route: 042
     Dates: start: 20120404, end: 20120831
  49. GRANISETRON [Concomitant]
     Route: 042
     Dates: start: 20120607, end: 20120609
  50. GRANISETRON [Concomitant]
     Route: 042
     Dates: start: 20120628, end: 20120629
  51. GRANISETRON [Concomitant]
     Route: 030
     Dates: start: 20120629, end: 20120630
  52. GRANISETRON [Concomitant]
     Route: 042
     Dates: start: 20120801, end: 20120803
  53. GRANISETRON [Concomitant]
     Route: 030
     Dates: start: 20120803, end: 20120803
  54. GRANISETRON [Concomitant]
     Route: 042
     Dates: start: 20120831, end: 20120901
  55. GRANISETRON [Concomitant]
     Route: 042
     Dates: start: 20120901, end: 20120902
  56. GRANISETRON [Concomitant]
     Route: 065
     Dates: start: 20120801, end: 20120803
  57. DEXAMETHASONE [Concomitant]
     Route: 042
     Dates: start: 20120502, end: 20120504
  58. DEXAMETHASONE [Concomitant]
     Dosage: 64 DROPS
     Route: 048
     Dates: start: 20120505, end: 20120505
  59. DEXAMETHASONE [Concomitant]
     Dosage: 32 DROPS
     Route: 048
     Dates: start: 20120506, end: 20120506
  60. DEXAMETHASONE [Concomitant]
     Route: 065
     Dates: start: 20120404, end: 20120831
  61. DEXAMETHASONE [Concomitant]
     Route: 042
     Dates: start: 20120607, end: 20120610
  62. DEXAMETHASONE [Concomitant]
     Route: 042
     Dates: start: 20120628, end: 20120629
  63. DEXAMETHASONE [Concomitant]
     Route: 065
     Dates: start: 20120630, end: 20120630
  64. DEXAMETHASONE [Concomitant]
     Dosage: 32 DROPS
     Route: 065
     Dates: start: 20120701, end: 20120701
  65. DEXAMETHASONE [Concomitant]
     Route: 042
     Dates: start: 20120801, end: 20120803
  66. DEXAMETHASONE [Concomitant]
     Dosage: 32 DROPS
     Route: 048
     Dates: start: 20120804, end: 20120804
  67. DEXAMETHASONE [Concomitant]
     Route: 042
     Dates: start: 20120831, end: 20120831
  68. DEXAMETHASONE [Concomitant]
     Route: 042
     Dates: start: 20120831, end: 20120901
  69. DEXAMETHASONE [Concomitant]
     Dosage: 32 DROPS
     Route: 048
     Dates: start: 20120902, end: 20120903
  70. RANITIDINE [Concomitant]
     Route: 042
     Dates: start: 20120502, end: 20120504
  71. RANITIDINE [Concomitant]
     Route: 065
     Dates: start: 20120607, end: 20120608
  72. RANITIDINE [Concomitant]
     Route: 042
     Dates: start: 20120628, end: 20120629
  73. RANITIDINE [Concomitant]
     Route: 042
     Dates: start: 20120801, end: 20120803
  74. RANITIDINE [Concomitant]
     Route: 042
     Dates: start: 20120831, end: 20120901
  75. GLUTATHIONE [Concomitant]
     Route: 042
     Dates: start: 20120504, end: 20120504
  76. PARACETAMOL [Concomitant]
     Indication: PYREXIA
     Route: 048
     Dates: start: 20120507, end: 20120507
  77. PARACETAMOL [Concomitant]
     Indication: ABDOMINAL PAIN
     Route: 048
     Dates: start: 20120531, end: 20120531
  78. PARACETAMOL [Concomitant]
     Route: 048
     Dates: start: 20120404, end: 20130103
  79. MAGNESIUM SULFATE [Concomitant]
     Indication: HYPOMAGNESAEMIA
     Route: 042
     Dates: start: 20120509, end: 20120509
  80. MAGNESIUM SULFATE [Concomitant]
     Dosage: 2 AMPOULES
     Route: 042
     Dates: start: 20120404, end: 20120831
  81. ACUTIL FOSFORO [Concomitant]
     Indication: HYPOPHOSPHATAEMIA
     Route: 048
     Dates: start: 20120509, end: 20120521
  82. LENOGRASTIM [Concomitant]
     Indication: NEUTROPENIA
     Route: 058
     Dates: start: 20120516, end: 20120517
  83. LENOGRASTIM [Concomitant]
     Route: 058
     Dates: start: 20120714, end: 20120715
  84. LENOGRASTIM [Concomitant]
     Route: 058
     Dates: start: 20120720, end: 20120721
  85. LEVOFLOXACIN [Concomitant]
     Indication: NEUTROPENIA
     Route: 048
     Dates: start: 20120516, end: 20120521
  86. LEVOFLOXACIN [Concomitant]
     Indication: COUGH
     Route: 048
     Dates: start: 20120705, end: 20120709
  87. LEVOFLOXACIN [Concomitant]
     Route: 065
     Dates: start: 20130111, end: 20130120
  88. MAGNESIO OXIDO [Concomitant]
     Indication: HYPOMAGNESAEMIA
     Route: 048
     Dates: start: 20120516, end: 20120521
  89. FILGRASTIM [Concomitant]
     Indication: NEUTROPENIA
     Route: 058
     Dates: start: 20120522, end: 20120522
  90. FILGRASTIM [Concomitant]
     Indication: LEUKOPENIA
     Route: 058
     Dates: start: 20120806, end: 20120808
  91. FILGRASTIM [Concomitant]
     Route: 058
     Dates: start: 20120822, end: 20120822
  92. FILGRASTIM [Concomitant]
     Route: 058
     Dates: start: 20120905, end: 20120906
  93. FILGRASTIM [Concomitant]
     Route: 058
     Dates: start: 20120921, end: 20120921
  94. CLORFENAMINA [Concomitant]
     Route: 048
     Dates: start: 20120404, end: 20130103
  95. MAGALDRATE [Concomitant]
     Indication: ABDOMINAL PAIN UPPER
     Route: 048
     Dates: start: 20120922, end: 20121014
  96. FUROSEMIDE [Concomitant]
     Indication: RALES
     Route: 042
     Dates: start: 20130201, end: 20130201
  97. FUROSEMIDE [Concomitant]
     Route: 048
     Dates: start: 20130202
  98. ACETYLCYSTEINE [Concomitant]
     Indication: RALES
     Route: 048
     Dates: start: 20130201
  99. POTASSIUM CHLORIDE [Concomitant]
     Route: 042
     Dates: start: 20120404, end: 20120831

REACTIONS (2)
  - Cardiac failure acute [Recovered/Resolved with Sequelae]
  - Ejection fraction decreased [Recovered/Resolved with Sequelae]
